FAERS Safety Report 7536225-6 (Version None)
Quarter: 2011Q2

REPORT INFORMATION
  Report Type: 
  Country: None (occurrence: None)
  Receive Date: 20110602
  Receipt Date: 20110517
  Transmission Date: 20111010
  Serious: Yes (Hospitalization)
  Sender: FDA-Public Use
  Company Number: 1000019351

PATIENT
  Age: 54 Year
  Sex: Female

DRUGS (6)
  1. ETORICOXIB (ETORICOXIB) (ETORICOXIB) [Concomitant]
  2. RAMIPRIL [Concomitant]
  3. CARVEDILOL [Concomitant]
  4. TORSEMIDE (TORASEMIDE) (TORASEMIDE) [Concomitant]
  5. ROFLUMILAST (ROFLUMILAST) (TABLETS) [Suspect]
     Indication: CHRONIC OBSTRUCTIVE PULMONARY DISEASE
     Dosage: 500 MCG (500 MCG, 1 IN 1 D), ORAL
     Route: 048
     Dates: start: 20101101, end: 20110214
  6. PANTOPRAZOLE (PANTOPRAZOLE) (PANTOPRAZOLE) [Concomitant]

REACTIONS (4)
  - ILEUS [None]
  - GASTROENTERITIS EOSINOPHILIC [None]
  - EOSINOPHILIC COLITIS [None]
  - ASCITES [None]
